FAERS Safety Report 4834818-8 (Version None)
Quarter: 2005Q4

REPORT INFORMATION
  Report Type: 
  Country: None (occurrence: None)
  Receive Date: 20051114
  Receipt Date: 20051103
  Transmission Date: 20060501
  Serious: Yes (Other)
  Sender: FDA-Public Use
  Company Number: 2005151767

PATIENT
  Sex: Male

DRUGS (3)
  1. BEXTRA [Suspect]
     Indication: ILL-DEFINED DISORDER
  2. CELEBREX [Suspect]
     Indication: ILL-DEFINED DISORDER
  3. VIOXX [Suspect]
     Indication: ILL-DEFINED DISORDER

REACTIONS (1)
  - CEREBROVASCULAR ACCIDENT [None]
